FAERS Safety Report 23015666 (Version 2)
Quarter: 2025Q2

REPORT INFORMATION
  Report Type: Spontaneous
  Country: ES (occurrence: ES)
  Receive Date: 20231002
  Receipt Date: 20250516
  Transmission Date: 20250717
  Serious: Yes (Other)
  Sender: MYLAN
  Company Number: ES-AUROBINDO-AUR-APL-2023-057897

PATIENT
  Age: 79 Year
  Sex: Female

DRUGS (5)
  1. VORICONAZOLE [Suspect]
     Active Substance: VORICONAZOLE
     Indication: Fungaemia
  2. VORICONAZOLE [Suspect]
     Active Substance: VORICONAZOLE
     Indication: Fungaemia
  3. VORICONAZOLE [Suspect]
     Active Substance: VORICONAZOLE
  4. VORICONAZOLE [Suspect]
     Active Substance: VORICONAZOLE
     Dosage: 400 MICROGRAM, QD
  5. NATAMYCIN [Suspect]
     Active Substance: NATAMYCIN
     Indication: Fungaemia

REACTIONS (1)
  - Necrotising scleritis [Recovered/Resolved]
